FAERS Safety Report 5808062-1 (Version None)
Quarter: 2008Q3

REPORT INFORMATION
  Report Type: 
  Country: None (occurrence: None)
  Receive Date: 20080708
  Receipt Date: 20080623
  Transmission Date: 20090109
  Serious: Yes (Other)
  Sender: FDA-Public Use
  Company Number: 2008S1010866

PATIENT
  Age: 16 Year
  Sex: Female

DRUGS (10)
  1. NAPROXEN [Suspect]
     Indication: DRUG USE FOR UNKNOWN INDICATION
     Dates: start: 20070201
  2. METHOTREXATE [Suspect]
     Indication: JUVENILE ARTHRITIS
     Dosage: 15 MG; ORAL : 20 MG; ORAL : 25 MG; ORAL
     Route: 048
     Dates: start: 20030311, end: 20030612
  3. METHOTREXATE [Suspect]
     Indication: JUVENILE ARTHRITIS
     Dosage: 15 MG; ORAL : 20 MG; ORAL : 25 MG; ORAL
     Route: 048
     Dates: start: 20030613, end: 20050603
  4. METHOTREXATE [Suspect]
     Indication: JUVENILE ARTHRITIS
     Dosage: 15 MG; ORAL : 20 MG; ORAL : 25 MG; ORAL
     Route: 048
     Dates: start: 20050603, end: 20051001
  5. METHOTREXATE [Suspect]
     Indication: JUVENILE ARTHRITIS
     Dosage: 15 MG; ORAL : 20 MG; ORAL : 25 MG; ORAL
     Route: 048
     Dates: start: 20060301, end: 20070920
  6. METHOTREXATE [Suspect]
     Indication: JUVENILE ARTHRITIS
     Dosage: 15 MG; ORAL : 20 MG; ORAL : 25 MG; ORAL
     Route: 048
     Dates: start: 20070921
  7. DICLOFENAC [Concomitant]
  8. FOLIC ACID [Concomitant]
  9. ACETAMINOPHEN [Concomitant]
  10. TRIAMCINOLONE [Concomitant]

REACTIONS (2)
  - ARTHRITIS [None]
  - CONDITION AGGRAVATED [None]
